FAERS Safety Report 6544946-7 (Version None)
Quarter: 2010Q1

REPORT INFORMATION
  Report Type: 
  Country: None (occurrence: None)
  Receive Date: 20100121
  Receipt Date: 20100113
  Transmission Date: 20100710
  Serious: Yes (Hospitalization)
  Sender: FDA-Public Use
  Company Number: GB-ABBOTT-10P-167-0617565-00

PATIENT
  Age: 49 Year
  Sex: Female

DRUGS (8)
  1. VALPROATE SODIUM [Suspect]
     Indication: EPILEPSY
     Dosage: DAILY
     Route: 048
     Dates: start: 20090127
  2. HALOPERIDOL [Suspect]
     Indication: SCHIZOAFFECTIVE DISORDER
     Route: 030
  3. ARIPIPRAZOLE [Suspect]
     Indication: SCHIZOAFFECTIVE DISORDER
     Dosage: DAILY
     Route: 048
     Dates: start: 20090127
  4. ASPIRIN [Concomitant]
     Indication: DRUG USE FOR UNKNOWN INDICATION
  5. NITRAZEPAM [Concomitant]
     Indication: ANXIOLYTIC THERAPY
  6. RAMIPRIL [Concomitant]
     Indication: DRUG USE FOR UNKNOWN INDICATION
  7. SERTRALINE HCL [Concomitant]
     Indication: DRUG USE FOR UNKNOWN INDICATION
  8. SIMVASTATIN [Concomitant]
     Indication: DRUG USE FOR UNKNOWN INDICATION

REACTIONS (2)
  - CONVERSION DISORDER [None]
  - CONVULSION [None]
